FAERS Safety Report 21143991 (Version 1)
Quarter: 2022Q3

REPORT INFORMATION
  Report Type: Spontaneous
  Country: US (occurrence: None)
  Receive Date: 20220728
  Receipt Date: 20220728
  Transmission Date: 20221027
  Serious: No
  Sender: FDA-Public Use
  Company Number: None

PATIENT
  Age: 48 Year
  Sex: Female

DRUGS (17)
  1. PEGASYS [Suspect]
     Active Substance: PEGINTERFERON ALFA-2A
     Indication: Cutaneous T-cell lymphoma
     Dosage: 90MCG Q7DAYS INJECTION
  2. ABILIFY [Concomitant]
     Active Substance: ARIPIPRAZOLE
  3. BETAMETHASONE [Concomitant]
     Active Substance: BETAMETHASONE
  4. BEXAROTENE [Concomitant]
  5. BREO ELLIPTA [Concomitant]
     Active Substance: FLUTICASONE FUROATE\VILANTEROL TRIFENATATE
  6. CLOBETASOL [Concomitant]
     Active Substance: CLOBETASOL
  7. CYANOCOBALAMIN [Concomitant]
     Active Substance: CYANOCOBALAMIN
  8. IMITREX [Concomitant]
     Active Substance: SUMATRIPTAN SUCCINATE
  9. KEPPRA [Concomitant]
     Active Substance: LEVETIRACETAM
  10. MOMETASONE [Concomitant]
     Active Substance: MOMETASONE
  11. PHENOBARBITAL [Concomitant]
     Active Substance: PHENOBARBITAL
  12. SINGULAIR [Concomitant]
     Active Substance: MONTELUKAST SODIUM
  13. TRAZODONE [Concomitant]
     Active Substance: TRAZODONE HYDROCHLORIDE
  14. TRIAMCINOLONE [Concomitant]
     Active Substance: TRIAMCINOLONE
  15. VENTOLIN [Concomitant]
     Active Substance: ALBUTEROL SULFATE
  16. VITAMIN D [Concomitant]
     Active Substance: VITAMIN D NOS
  17. VYVANSE [Concomitant]
     Active Substance: LISDEXAMFETAMINE DIMESYLATE

REACTIONS (1)
  - White blood cell count decreased [None]
